FAERS Safety Report 19690755 (Version 27)
Quarter: 2023Q1

REPORT INFORMATION
  Report Type: Spontaneous
  Country: US (occurrence: US)
  Receive Date: 20210812
  Receipt Date: 20230330
  Transmission Date: 20230418
  Serious: Yes (Hospitalization, Other)
  Sender: FDA-Public Use
  Company Number: US-SUN PHARMACEUTICAL INDUSTRIES LTD-2021R1-304137

PATIENT
  Sex: Male
  Weight: 64.853 kg

DRUGS (7)
  1. EPOPROSTENOL [Suspect]
     Active Substance: EPOPROSTENOL
     Indication: Pulmonary arterial hypertension
     Dosage: 11 NG/KG/MIN, CONTINUOUS
     Route: 042
     Dates: start: 20210428
  2. EPOPROSTENOL [Suspect]
     Active Substance: EPOPROSTENOL
     Indication: Pulmonary arterial hypertension
     Dosage: 14 NG/KG/MIN, CONTINUOUS
     Route: 042
     Dates: start: 20210428
  3. EPOPROSTENOL [Suspect]
     Active Substance: EPOPROSTENOL
     Dosage: 14 NG/KG/MIN - INTRAVENOUS
     Route: 042
     Dates: start: 20210428
  4. EPOPROSTENOL [Suspect]
     Active Substance: EPOPROSTENOL
     Dosage: 14 NG/KG/MIN - INTRAVENOUS
     Route: 042
     Dates: start: 20210428
  5. EPOPROSTENOL [Suspect]
     Active Substance: EPOPROSTENOL
     Dosage: 14 NG/KG/MIN CONTINOUS
     Route: 042
     Dates: start: 20210428
  6. EPOPROSTENOL [Suspect]
     Active Substance: EPOPROSTENOL
     Dosage: DOSE 14 NG/KG/MIN
     Route: 042
     Dates: start: 20220428
  7. ELIQUIS [Concomitant]
     Active Substance: APIXABAN
     Indication: Product used for unknown indication
     Dosage: UNK
     Route: 065

REACTIONS (27)
  - Epistaxis [Unknown]
  - Pancreatic cyst [Unknown]
  - Fluid retention [Unknown]
  - Nasal injury [Unknown]
  - Nephrolithiasis [Unknown]
  - Device issue [Unknown]
  - Fungal infection [Unknown]
  - Adverse drug reaction [Unknown]
  - Device malfunction [Unknown]
  - Nausea [Unknown]
  - Rash [Unknown]
  - Dizziness [Not Recovered/Not Resolved]
  - Hyperhidrosis [Unknown]
  - Muscle strain [Unknown]
  - Device occlusion [Unknown]
  - Weight decreased [Unknown]
  - Dyspnoea [Unknown]
  - Decubitus ulcer [Unknown]
  - Anxiety [Unknown]
  - Dyspepsia [Unknown]
  - Diarrhoea [Unknown]
  - Drug hypersensitivity [Unknown]
  - Application site rash [Unknown]
  - Sensitive skin [Unknown]
  - Complication associated with device [Unknown]
  - Abnormal faeces [Unknown]
  - Gastrointestinal disorder [Unknown]
